FAERS Safety Report 20047453 (Version 7)
Quarter: 2022Q1

REPORT INFORMATION
  Report Type: Spontaneous
  Country: PT (occurrence: PT)
  Receive Date: 20211109
  Receipt Date: 20220110
  Transmission Date: 20220424
  Serious: Yes (Life-Threatening, Hospitalization, Other)
  Sender: FDA-Public Use
  Company Number: PT-AUROBINDO-AUR-APL-2021-045731

PATIENT
  Age: 37 Year
  Sex: Female

DRUGS (9)
  1. NAPROXEN [Suspect]
     Active Substance: NAPROXEN
     Indication: Product used for unknown indication
     Dosage: 20 DOSAGE FORM(1 TOTAL)
     Route: 065
  2. NAPROXEN [Suspect]
     Active Substance: NAPROXEN
     Dosage: 500 MILLIGRAM,TOTAL(ONE AND A HALF HOUR BEFORE 0
     Route: 048
  3. NAPROXEN [Suspect]
     Active Substance: NAPROXEN
     Dosage: 10000 MILLIGRAM,(1 TOTAL) ONCE A DAY
     Route: 065
  4. DIETARY SUPPLEMENT [Suspect]
     Active Substance: DIETARY SUPPLEMENT
     Indication: Product used for unknown indication
     Dosage: 30 DOSAGE FORM (1 TOTAL)
     Route: 065
  5. DIETARY SUPPLEMENT [Suspect]
     Active Substance: DIETARY SUPPLEMENT
     Indication: Product used for unknown indication
     Dosage: 30 TABLETS OF ALANERV VOLUNTARY INTAKE
     Route: 065
  6. CYCLOBENZAPRINE [Suspect]
     Active Substance: CYCLOBENZAPRINE
     Indication: Product used for unknown indication
     Dosage: 15 MILLIGRAM (10 TABLETS OF CYCLOBENZAPRINE VOLUNTARY INTAKE)
     Route: 048
  7. CYCLOBENZAPRINE HYDROCHLORIDE [Suspect]
     Active Substance: CYCLOBENZAPRINE HYDROCHLORIDE
     Indication: Product used for unknown indication
     Dosage: 10 DOSAGE FORM (1 TOTAL)
     Route: 048
  8. CYCLOBENZAPRINE HYDROCHLORIDE [Suspect]
     Active Substance: CYCLOBENZAPRINE HYDROCHLORIDE
     Dosage: 150  MILLIGRAM,TOTAL(ONE AND A HALF HOUR BEFORE )
     Route: 065
  9. VITAMIN B [Suspect]
     Active Substance: VITAMIN B
     Indication: Product used for unknown indication
     Dosage: 30
     Route: 065

REACTIONS (9)
  - Thrombocytopenia [Recovering/Resolving]
  - Autoimmune haemolytic anaemia [Recovering/Resolving]
  - Toxicity to various agents [Recovered/Resolved]
  - Intentional overdose [Recovering/Resolving]
  - Potentiating drug interaction [Unknown]
  - Intentional product misuse [Unknown]
  - Drug abuse [Unknown]
  - Serotonin syndrome [Recovered/Resolved]
  - Haemolytic anaemia [Recovered/Resolved]
